FAERS Safety Report 6114305-X (Version None)
Quarter: 2009Q1

REPORT INFORMATION
  Report Type: 
  Country: None (occurrence: None)
  Receive Date: 20090312
  Receipt Date: 20081217
  Transmission Date: 20090719
  Serious: Yes (Hospitalization, Other)
  Sender: FDA-Public Use
  Company Number: US-ABBOTT-08P-163-0493335-00

PATIENT
  Age: 56 Year
  Sex: Female
  Weight: 79.8 kg

DRUGS (17)
  1. DEPAKOTE [Suspect]
     Indication: HEADACHE
  2. CHANTIX [Suspect]
     Indication: SMOKING CESSATION THERAPY
     Route: 048
     Dates: start: 20080919, end: 20080926
  3. HYDROCHLOROTHIAZIDE [Suspect]
     Indication: PANCREATITIS
     Route: 048
     Dates: start: 20080101
  4. DIOVAN [Concomitant]
     Indication: DRUG USE FOR UNKNOWN INDICATION
  5. NEXIUM [Concomitant]
     Indication: DRUG USE FOR UNKNOWN INDICATION
  6. SYNTHROID [Concomitant]
     Indication: DRUG USE FOR UNKNOWN INDICATION
  7. LIPITOR [Concomitant]
     Indication: DRUG USE FOR UNKNOWN INDICATION
  8. PROTONIX [Concomitant]
     Indication: DRUG USE FOR UNKNOWN INDICATION
  9. ALBUTEROL [Concomitant]
     Indication: DRUG USE FOR UNKNOWN INDICATION
  10. HYDROCODONE BITARTRATE [Concomitant]
     Indication: DRUG USE FOR UNKNOWN INDICATION
  11. ACCOLATE [Concomitant]
     Indication: DRUG USE FOR UNKNOWN INDICATION
  12. METFORMIN HCL [Concomitant]
     Indication: DRUG USE FOR UNKNOWN INDICATION
  13. CORTEF [Concomitant]
     Indication: DRUG USE FOR UNKNOWN INDICATION
  14. CYMBALTA [Concomitant]
     Indication: DRUG USE FOR UNKNOWN INDICATION
     Dosage: EVERY MORNING
  15. CYMBALTA [Concomitant]
     Dosage: EVERY EVENING
  16. SYMBICORT [Concomitant]
     Indication: DRUG USE FOR UNKNOWN INDICATION
  17. DRUGS FOR TREATMENT OF PEPTIC ULCER [Concomitant]
     Indication: DRUG USE FOR UNKNOWN INDICATION

REACTIONS (1)
  - CHEST PAIN [None]
